FAERS Safety Report 8545703-2 (Version None)
Quarter: 2012Q3

REPORT INFORMATION
  Report Type: 
  Country: None (occurrence: None)
  Receive Date: 20120727
  Receipt Date: 20120726
  Transmission Date: 20120928
  Serious: Yes (Death, Congenital Anomaly)
  Sender: FDA-Public Use
  Company Number: US-GILEAD-2012-0051519

PATIENT

DRUGS (7)
  1. EMTRICITABINE/TENOFOVIR DISOPROXIL FUMARATE [Suspect]
     Dosage: UNK
  2. NORVIR [Concomitant]
     Indication: HIV INFECTION
     Dosage: UNK
     Route: 064
     Dates: end: 20111111
  3. PREZISTA [Concomitant]
     Dosage: UNK
     Route: 064
     Dates: start: 20120110
  4. RILPIVIRINE [Concomitant]
     Indication: HIV INFECTION
     Dosage: 1 DF, QD
     Route: 064
     Dates: start: 20111111, end: 20120110
  5. EMTRICITABINE/TENOFOVIR DISOPROXIL FUMARATE [Suspect]
     Indication: HIV INFECTION
     Dosage: 1 DF, QD
     Route: 064
  6. NORVIR [Concomitant]
     Dosage: UNK
     Route: 064
     Dates: start: 20120110
  7. PREZISTA [Concomitant]
     Indication: HIV INFECTION
     Dosage: UNK
     Route: 064
     Dates: end: 20111111

REACTIONS (1)
  - CYSTIC LYMPHANGIOMA [None]
